FAERS Safety Report 12440684 (Version 6)
Quarter: 2016Q3

REPORT INFORMATION
  Report Type: Report from Study
  Country: CO (occurrence: CO)
  Receive Date: 20160606
  Receipt Date: 20160826
  Transmission Date: 20161109
  Serious: Yes (Death, Hospitalization, Other)
  Sender: FDA-Public Use
  Company Number: PHHY2016CO053936

PATIENT
  Age: 53 Year
  Sex: Male
  Weight: 60 kg

DRUGS (8)
  1. VANCOMYCIN [Concomitant]
     Active Substance: VANCOMYCIN
     Indication: PRODUCT USED FOR UNKNOWN INDICATION
     Route: 042
  2. OMEPRAZOLE. [Concomitant]
     Active Substance: OMEPRAZOLE
     Indication: PRODUCT USED FOR UNKNOWN INDICATION
     Dosage: 20 MG, Q12H
     Route: 048
  3. ESOMEPRAZOLE [Concomitant]
     Active Substance: ESOMEPRAZOLE
     Indication: PRODUCT USED FOR UNKNOWN INDICATION
     Dosage: 40 MG, QD
     Route: 048
  4. ENSURE [Concomitant]
     Active Substance: AMINO ACIDS\DEXTROSE\ELECTROLYTES NOS\SOYBEAN OIL\VITAMINS
     Indication: PRODUCT USED FOR UNKNOWN INDICATION
     Route: 065
  5. ALBUMIN [Concomitant]
     Active Substance: ALBUMIN HUMAN
     Indication: PRODUCT USED FOR UNKNOWN INDICATION
     Route: 042
  6. TASIGNA [Suspect]
     Active Substance: NILOTINIB
     Indication: CHRONIC MYELOID LEUKAEMIA
     Dosage: 2 DF, Q12H
     Route: 048
     Dates: start: 20160322
  7. DOPAMINE [Concomitant]
     Active Substance: DOPAMINE\DOPAMINE HYDROCHLORIDE
     Indication: PRODUCT USED FOR UNKNOWN INDICATION
     Route: 042
  8. FUROSEMIDE. [Concomitant]
     Active Substance: FUROSEMIDE
     Indication: PRODUCT USED FOR UNKNOWN INDICATION
     Dosage: 40 MG, Q12H
     Route: 048

REACTIONS (18)
  - Abdominal pain [Unknown]
  - Leukaemic infiltration hepatic [Unknown]
  - Central nervous system leukaemia [Unknown]
  - Liver disorder [Unknown]
  - Oncologic complication [Unknown]
  - Back pain [Unknown]
  - Swelling [Unknown]
  - Death [Fatal]
  - Hepatic cirrhosis [Unknown]
  - Erythema [Unknown]
  - Diarrhoea [Unknown]
  - Acute lymphocytic leukaemia [Unknown]
  - Second primary malignancy [Unknown]
  - Blister rupture [Unknown]
  - Gastritis [Unknown]
  - Malaise [Unknown]
  - Fluid retention [Unknown]
  - Inflammation [Unknown]

NARRATIVE: CASE EVENT DATE: 20160719
